FAERS Safety Report 24142145 (Version 1)
Quarter: 2024Q3

REPORT INFORMATION
  Report Type: Report from Study
  Country: US (occurrence: US)
  Receive Date: 20240726
  Receipt Date: 20240726
  Transmission Date: 20241017
  Serious: Yes (Hospitalization, Other)
  Sender: GILEAD
  Company Number: US-GILEAD-2024-0681820

PATIENT
  Sex: Female

DRUGS (2)
  1. AZTREONAM LYSINE [Suspect]
     Active Substance: AZTREONAM LYSINE
     Indication: Pseudomonas infection
     Dosage: UNK (28 DAYS ON AND 28 DAYS OFF 75MG 84 VIALS)
     Route: 065
  2. AZTREONAM LYSINE [Suspect]
     Active Substance: AZTREONAM LYSINE
     Indication: Bronchiectasis

REACTIONS (6)
  - Clostridium difficile infection [Unknown]
  - Gastrointestinal disorder [Unknown]
  - Aphonia [Unknown]
  - Condition aggravated [Unknown]
  - Lung disorder [Unknown]
  - Off label use [Unknown]
